FAERS Safety Report 11176808 (Version 1)
Quarter: 2015Q2

REPORT INFORMATION
  Report Type: Spontaneous
  Country: US (occurrence: None)
  Receive Date: 20150608
  Receipt Date: 20150608
  Transmission Date: 20150821
  Serious: Yes (Hospitalization)
  Sender: FDA-Public Use
  Company Number: PR 10185

PATIENT
  Age: 63 Year
  Sex: Male
  Weight: 40 kg

DRUGS (4)
  1. ALOIS ( MEMANTINE HYDROCHLORIDE) [Concomitant]
  2. ALPHAGAN (BRIMONIDINE TARTRATE) [Concomitant]
  3. COSOPT [Suspect]
     Active Substance: DORZOLAMIDE HYDROCHLORIDE\TIMOLOL MALEATE
     Indication: GLAUCOMA
     Dosage: IN EACH EYES
     Dates: start: 2000, end: 201505
  4. LUMIGAN (BIMATOPROST) [Concomitant]

REACTIONS (11)
  - Asthenia [None]
  - Therapy cessation [None]
  - Blindness unilateral [None]
  - Femur fracture [None]
  - Depression [None]
  - Blood pressure increased [None]
  - Dengue fever [None]
  - Drug effect incomplete [None]
  - Drug administration error [None]
  - Product quality issue [None]
  - Fall [None]

NARRATIVE: CASE EVENT DATE: 2000
